FAERS Safety Report 22186224 (Version 1)
Quarter: 2023Q2

REPORT INFORMATION
  Report Type: Spontaneous
  Country: FR (occurrence: FR)
  Receive Date: 20230407
  Receipt Date: 20230407
  Transmission Date: 20230721
  Serious: Yes (Death, Other)
  Sender: FDA-Public Use
  Company Number: None

PATIENT

DRUGS (1)
  1. IBUPROFEN [Suspect]
     Active Substance: IBUPROFEN
     Indication: Influenza like illness
     Dosage: UNK
     Route: 048
     Dates: start: 20230227

REACTIONS (3)
  - Streptococcal endocarditis [Fatal]
  - Pericarditis infective [Fatal]
  - Streptococcal infection [Fatal]

NARRATIVE: CASE EVENT DATE: 20230301
